FAERS Safety Report 5581177-1 (Version None)
Quarter: 2007Q4

REPORT INFORMATION
  Report Type: 
  Country: None (occurrence: None)
  Receive Date: 20071227
  Receipt Date: 20071213
  Transmission Date: 20080405
  Serious: Yes (Other)
  Sender: FDA-Public Use
  Company Number: GXKR2007GB10705

PATIENT
  Age: 25 Year
  Sex: Female
  Weight: 69 kg

DRUGS (2)
  1. SERTRALINE [Suspect]
     Dosage: 100 MG,
  2. IMPLANON [Suspect]
     Indication: CONTRACEPTION

REACTIONS (4)
  - DRUG EXPOSURE DURING PREGNANCY [None]
  - DRUG INTERACTION [None]
  - ECTOPIC PREGNANCY [None]
  - PREGNANCY WITH IMPLANT CONTRACEPTIVE [None]
